FAERS Safety Report 5806724-3 (Version None)
Quarter: 2008Q3

REPORT INFORMATION
  Report Type: 
  Country: None (occurrence: None)
  Receive Date: 20080709
  Receipt Date: 20080709
  Transmission Date: 20090109
  Serious: Yes (Other)
  Sender: FDA-Public Use
  Company Number: None

PATIENT
  Sex: Male
  Weight: 23.1334 kg

DRUGS (1)
  1. LISDEXAMFETAMINE 30 MG [Suspect]
     Indication: ATTENTION DEFICIT/HYPERACTIVITY DISORDER
     Dosage: EVERY MORNING PO
     Route: 048
     Dates: start: 20080625, end: 20080626

REACTIONS (1)
  - SOMNOLENCE [None]
